FAERS Safety Report 5755923-8 (Version None)
Quarter: 2008Q2

REPORT INFORMATION
  Report Type: 
  Country: None (occurrence: None)
  Receive Date: 20080602
  Receipt Date: 20080521
  Transmission Date: 20081010
  Serious: Yes (Death)
  Sender: FDA-Public Use
  Company Number: JP-ELI_LILLY_AND_COMPANY-JP200803000751

PATIENT
  Sex: Female

DRUGS (6)
  1. RALOXIFENE HYDROCHLORIDE [Suspect]
     Indication: OSTEOPOROSIS POSTMENOPAUSAL
     Dosage: 60 MG, DAILY (1/D)
     Route: 048
     Dates: start: 20050120, end: 20060302
  2. LASIX [Concomitant]
     Indication: RENAL FAILURE CHRONIC
     Dosage: 80 MG, DAILY (1/D)
     Route: 048
     Dates: end: 20060404
  3. NITOROL [Concomitant]
     Indication: ANGINA PECTORIS
     Dosage: 3 UNK, DAILY (1/D)
     Route: 048
     Dates: end: 20060317
  4. ALLOPURINOL [Concomitant]
     Indication: HYPERURICAEMIA
     Dosage: 100 MG, DAILY (1/D)
     Route: 048
     Dates: end: 20060317
  5. THYRADIN S [Concomitant]
     Indication: HYPOTHYROIDISM
     Dosage: 50 UG, DAILY (1/D)
     Route: 048
     Dates: end: 20060404
  6. ARGAMATE [Concomitant]
     Indication: RENAL FAILURE CHRONIC
     Dosage: 2 UNK, DAILY (1/D)
     Route: 048
     Dates: end: 20060317

REACTIONS (1)
  - RENAL FAILURE [None]
